FAERS Safety Report 16860476 (Version 2)
Quarter: 2020Q4

REPORT INFORMATION
  Report Type: Spontaneous
  Country: US (occurrence: US)
  Receive Date: 20190927
  Receipt Date: 20201002
  Transmission Date: 20210113
  Serious: Yes (Other)
  Sender: FDA-Public Use
  Company Number: US-GILEAD-2019-0429757

PATIENT
  Age: 39 Year
  Sex: Female
  Weight: 63.49 kg

DRUGS (16)
  1. ZIAGEN [Concomitant]
     Active Substance: ABACAVIR SULFATE
  2. ABACAVIR. [Concomitant]
     Active Substance: ABACAVIR
  3. MORPHINE [Concomitant]
     Active Substance: MORPHINE
  4. EPIVIR [Concomitant]
     Active Substance: LAMIVUDINE
  5. TIVICAY [Concomitant]
     Active Substance: DOLUTEGRAVIR SODIUM
  6. SODIUM CHLORIDE. [Concomitant]
     Active Substance: SODIUM CHLORIDE
  7. RETROVIR [Concomitant]
     Active Substance: ZIDOVUDINE
  8. ACETAMINOPHEN;HYDROCODONE [Concomitant]
     Active Substance: ACETAMINOPHEN\HYDROCODONE
  9. TRUVADA [Suspect]
     Active Substance: EMTRICITABINE\TENOFOVIR DISOPROXIL FUMARATE
     Indication: HIV INFECTION
     Dosage: UNK
     Route: 048
     Dates: start: 2012, end: 201811
  10. ATORVASTATIN [Concomitant]
     Active Substance: ATORVASTATIN
  11. EPZICOM [Concomitant]
     Active Substance: ABACAVIR SULFATE\LAMIVUDINE
  12. ONDANSETRON [Concomitant]
     Active Substance: ONDANSETRON
  13. TRIUMEQ [Concomitant]
     Active Substance: ABACAVIR SULFATE\DOLUTEGRAVIR SODIUM\LAMIVUDINE
  14. LISINOPRIL AND HYDROCHLOROTHIAZIDE [Concomitant]
     Active Substance: HYDROCHLOROTHIAZIDE\LISINOPRIL
  15. IBUPROFEN. [Concomitant]
     Active Substance: IBUPROFEN
  16. PANTOPRAZOLE [Concomitant]
     Active Substance: PANTOPRAZOLE

REACTIONS (12)
  - Renal failure [Unknown]
  - End stage renal disease [Unknown]
  - Anhedonia [Not Recovered/Not Resolved]
  - Impaired work ability [Unknown]
  - Loss of personal independence in daily activities [Not Recovered/Not Resolved]
  - Acute kidney injury [Not Recovered/Not Resolved]
  - Pain [Not Recovered/Not Resolved]
  - Emotional distress [Not Recovered/Not Resolved]
  - Quality of life decreased [Not Recovered/Not Resolved]
  - Fatigue [Unknown]
  - Economic problem [Not Recovered/Not Resolved]
  - Anxiety [Not Recovered/Not Resolved]

NARRATIVE: CASE EVENT DATE: 2017
